FAERS Safety Report 24857997 (Version 1)
Quarter: 2025Q1

REPORT INFORMATION
  Report Type: Spontaneous
  Country: US (occurrence: US)
  Receive Date: 20250117
  Receipt Date: 20250117
  Transmission Date: 20250409
  Serious: No
  Sender: SANOFI AVENTIS
  Company Number: US-SA-2025SA013273

PATIENT
  Age: 79 Year
  Sex: Female

DRUGS (12)
  1. DUPIXENT [Suspect]
     Active Substance: DUPILUMAB
     Indication: Dermatitis atopic
     Dosage: 300 MG, QOW
     Route: 058
     Dates: start: 20241112
  2. ROSUVASTATIN [Concomitant]
     Active Substance: ROSUVASTATIN
  3. AMITRIPTYLINE [Concomitant]
     Active Substance: AMITRIPTYLINE
  4. ASPIRIN [Concomitant]
     Active Substance: ASPIRIN
  5. CARVEDILOL [Concomitant]
     Active Substance: CARVEDILOL
  6. CLOBETASOL [Concomitant]
     Active Substance: CLOBETASOL
  7. CLONIDINE [Concomitant]
     Active Substance: CLONIDINE
  8. GLIMEPIRIDE [Concomitant]
     Active Substance: GLIMEPIRIDE
  9. HYDRALAZINE [Concomitant]
     Active Substance: HYDRALAZINE HYDROCHLORIDE
  10. POTASSIUM [Concomitant]
     Active Substance: POTASSIUM
  11. SPIRONOLACTONE [Concomitant]
     Active Substance: SPIRONOLACTONE
  12. VALSARTAN [Concomitant]
     Active Substance: VALSARTAN

REACTIONS (2)
  - Eczema [Not Recovered/Not Resolved]
  - Hypertension [Not Recovered/Not Resolved]

NARRATIVE: CASE EVENT DATE: 20240101
